FAERS Safety Report 10240790 (Version 2)
Quarter: 2014Q2

REPORT INFORMATION
  Report Type: Spontaneous
  Country: US (occurrence: US)
  Receive Date: 20140617
  Receipt Date: 20140617
  Transmission Date: 20141212
  Serious: No
  Sender: FDA-Public Use
  Company Number: US-PFIZER INC-2013240678

PATIENT
  Age: 56 Year
  Sex: Female
  Weight: 90.25 kg

DRUGS (8)
  1. LYRICA [Suspect]
     Indication: FIBROMYALGIA
     Dosage: 75 MG, 2X/DAY
     Route: 048
  2. NEURONTIN [Suspect]
     Dosage: 300 MG CAPSULE; 1 CAPSULE 2 TIMES A DAY
  3. NORVASC [Suspect]
     Dosage: 10 MG TABLET; 1 TABLET ONCE A DAY
  4. XANAX [Concomitant]
     Indication: ANXIETY
     Dosage: 0.5 MG TABLET, 1 TABLET 2 TIMES A DAY
  5. LISINOPRIL [Concomitant]
     Indication: HYPERTENSION
     Dosage: 40 MG TABLET, 1 TABLET ONCE A DAY
  6. AMLODIPINE [Concomitant]
     Indication: HYPERTENSION
     Dosage: 10 MG TABLET; 1 TABLET ONCE A DAY
  7. CITALOPRAM [Concomitant]
     Indication: DEPRESSION
     Dosage: 10 MG TABLET, 1 TABLET ONCE A DAY
  8. PROTONIX [Concomitant]
     Indication: GASTROOESOPHAGEAL REFLUX DISEASE
     Dosage: 40 MG TABLET, DELAYED RELEASE (DR/EC), 1 TABLET DELAYED RELEASE (DR/EC) ONCE A DAY

REACTIONS (3)
  - Myalgia [Not Recovered/Not Resolved]
  - Arthralgia [Not Recovered/Not Resolved]
  - Headache [Not Recovered/Not Resolved]
